FAERS Safety Report 21726235 (Version 1)
Quarter: 2022Q4

REPORT INFORMATION
  Report Type: Spontaneous
  Country: US (occurrence: US)
  Receive Date: 20221214
  Receipt Date: 20221214
  Transmission Date: 20230112
  Serious: Yes (Hospitalization, Other)
  Sender: FDA-Public Use
  Company Number: US-drreddys-SPO/USA/22/0158139

PATIENT
  Age: 69 Year
  Sex: Male

DRUGS (1)
  1. PROPOFOL [Suspect]
     Active Substance: PROPOFOL
     Indication: Sedative therapy
     Dosage: MORE THAN 25MCG/KG/HR

REACTIONS (9)
  - Acute respiratory distress syndrome [Unknown]
  - Hyperlipidaemia [Recovering/Resolving]
  - Rhabdomyolysis [Recovering/Resolving]
  - Acidosis [Recovering/Resolving]
  - Hypertransaminasaemia [Recovering/Resolving]
  - Acute kidney injury [Not Recovered/Not Resolved]
  - Propofol infusion syndrome [Unknown]
  - Hypotension [Unknown]
  - Arrhythmia [Unknown]
